FAERS Safety Report 9227685 (Version 1)
Quarter: 2013Q2

REPORT INFORMATION
  Report Type: Spontaneous
  Country: FR (occurrence: FR)
  Receive Date: 20130412
  Receipt Date: 20130412
  Transmission Date: 20140414
  Serious: Yes (Death, Hospitalization)
  Sender: FDA-Public Use
  Company Number: FR-SANOFI-AVENTIS-2013SA036354

PATIENT
  Age: 55 Year
  Sex: Male

DRUGS (12)
  1. TAXOTERE [Suspect]
     Indication: LUNG NEOPLASM MALIGNANT
     Dosage: DOSE: 75 MG/M2
     Route: 042
     Dates: start: 20130204, end: 20130204
  2. PACLITAXEL [Suspect]
     Indication: LUNG NEOPLASM MALIGNANT
     Dosage: DOSE: 200MG/M2
     Route: 042
     Dates: start: 20130108, end: 20130108
  3. PACLITAXEL [Suspect]
     Indication: LUNG NEOPLASM MALIGNANT
     Dosage: DOSE: 200MG/M2
     Route: 042
     Dates: start: 20130129, end: 20130129
  4. CARBOPLATIN [Concomitant]
     Indication: LUNG NEOPLASM MALIGNANT
     Route: 042
     Dates: start: 20130108, end: 20130108
  5. CARBOPLATIN [Concomitant]
     Indication: LUNG NEOPLASM MALIGNANT
     Route: 042
     Dates: start: 20130129, end: 20130129
  6. CARBOPLATIN [Concomitant]
     Indication: LUNG NEOPLASM MALIGNANT
     Route: 042
     Dates: start: 20130204, end: 20130204
  7. CODEINE CAMSILATE/ETHYLMORPHINE CAMSILATE/HERBAL EXTRACT NOS [Concomitant]
     Route: 048
  8. EPREX [Concomitant]
     Dosage: STRENGTH: 40000 IU/ML
     Route: 058
  9. POLARAMINE [Concomitant]
     Indication: PREMEDICATION
  10. RANITIDINE [Concomitant]
     Indication: PREMEDICATION
  11. DEXAMETHASONE [Concomitant]
     Indication: PREMEDICATION
  12. HEPARIN [Concomitant]
     Dates: start: 20130129, end: 20130130

REACTIONS (2)
  - Histiocytosis haematophagic [Fatal]
  - Anaphylactoid reaction [Recovered/Resolved]
